FAERS Safety Report 8122840-8 (Version None)
Quarter: 2012Q1

REPORT INFORMATION
  Report Type: 
  Country: None (occurrence: None)
  Receive Date: 20120208
  Receipt Date: 20120125
  Transmission Date: 20120608
  Serious: Yes (Hospitalization)
  Sender: FDA-Public Use
  Company Number: AU-CELGENEUS-008-21880-12011441

PATIENT
  Sex: Female
  Weight: 68.4 kg

DRUGS (19)
  1. ATENOLOL [Concomitant]
     Indication: HYPERTENSION
     Route: 048
     Dates: start: 20100215
  2. VITAMIN D SUPPLEMENT [Concomitant]
     Indication: VITAMIN D
     Route: 048
     Dates: start: 20080101
  3. SIMVASTATIN [Concomitant]
     Route: 048
     Dates: start: 20070108
  4. OMEPRAZOLE [Concomitant]
     Route: 048
     Dates: start: 20100101
  5. LIDOCAINE [Concomitant]
     Indication: NEUROPATHY PERIPHERAL
     Route: 061
     Dates: start: 20100729, end: 20100812
  6. TRIMETHOPRIM [Concomitant]
     Indication: INFECTION PROPHYLAXIS
     Route: 048
     Dates: start: 20100413
  7. REVLIMID [Suspect]
     Indication: MULTIPLE MYELOMA
     Dosage: 15 MILLIGRAM
     Route: 048
     Dates: start: 20111220, end: 20120109
  8. ASPIRIN [Concomitant]
     Route: 048
     Dates: start: 20070215
  9. FISH OIL [Concomitant]
     Route: 048
     Dates: start: 20090201
  10. ZOMETA [Concomitant]
     Indication: MULTIPLE MYELOMA
     Route: 041
     Dates: start: 20061204
  11. DOTHEP [Concomitant]
     Indication: ANXIETY
     Route: 048
     Dates: start: 20080101
  12. CALTRATE [Concomitant]
     Indication: MULTIPLE MYELOMA
     Route: 048
     Dates: start: 20050101
  13. BIODAN VITAMIN B+ [Concomitant]
     Indication: VITAMIN SUPPLEMENTATION
     Route: 048
     Dates: start: 20110801
  14. BACTRIM [Concomitant]
     Indication: INFECTION PROPHYLAXIS
     Route: 048
     Dates: start: 20100215
  15. DOMPERIDONE [Concomitant]
     Indication: NAUSEA
     Route: 048
     Dates: start: 20100830
  16. ATENOLOL [Concomitant]
     Route: 048
     Dates: start: 20090301
  17. TENORMIN [Concomitant]
     Indication: HYPERTENSION
     Route: 048
     Dates: start: 20090301
  18. METOCLOPRAMIDE [Concomitant]
     Indication: NAUSEA
     Route: 048
     Dates: start: 20101002
  19. TEMAZEPAM [Concomitant]
     Indication: INSOMNIA
     Route: 048
     Dates: start: 20110801

REACTIONS (1)
  - PULMONARY FIBROSIS [None]
